FAERS Safety Report 18692005 (Version 1)
Quarter: 2021Q1

REPORT INFORMATION
  Report Type: Spontaneous
  Country: BE (occurrence: BE)
  Receive Date: 20210102
  Receipt Date: 20210102
  Transmission Date: 20210419
  Serious: Yes (Life-Threatening, Hospitalization, Other)
  Sender: FDA-Public Use
  Company Number: BE-ACCORD-213014

PATIENT
  Age: 54 Year
  Sex: Female

DRUGS (1)
  1. HYDROXYCHLOROQUINE [Suspect]
     Active Substance: HYDROXYCHLOROQUINE

REACTIONS (8)
  - Pulmonary oedema [Recovered/Resolved]
  - Cardiogenic shock [Recovered/Resolved]
  - Suicide attempt [Unknown]
  - Electrocardiogram ST segment depression [Recovered/Resolved]
  - Atrial fibrillation [Recovered/Resolved]
  - Intentional overdose [Unknown]
  - Cardiac failure congestive [Recovered/Resolved]
  - Ventricular fibrillation [Recovered/Resolved]
